FAERS Safety Report 10384880 (Version 1)
Quarter: 2014Q3

REPORT INFORMATION
  Report Type: Spontaneous
  Country: US (occurrence: US)
  Receive Date: 20140814
  Receipt Date: 20140814
  Transmission Date: 20150326
  Serious: Yes (Hospitalization)
  Sender: FDA-Public Use
  Company Number: US-B.I. PHARMACEUTICALS,INC./RIDGEFIELD-2014-BI-36915BP

PATIENT
  Age: 80 Year
  Sex: Male
  Weight: 83.9 kg

DRUGS (7)
  1. DOXAZOSIN MESYLATE. [Concomitant]
     Active Substance: DOXAZOSIN MESYLATE
     Dosage: 80 MG
     Route: 048
  2. PRADAXA [Suspect]
     Active Substance: DABIGATRAN ETEXILATE MESYLATE
     Indication: PRODUCT USED FOR UNKNOWN INDICATION
     Dosage: 150 MG
     Route: 048
     Dates: end: 20120714
  3. LORTAB [Concomitant]
     Active Substance: ACETAMINOPHEN\HYDROCODONE BITARTRATE
     Dosage: 2 ANZ
     Route: 065
  4. SOTALOL. [Concomitant]
     Active Substance: SOTALOL
     Dosage: 80 MG
     Route: 048
  5. ZOCOR [Concomitant]
     Active Substance: SIMVASTATIN
     Dosage: 400 MG
     Route: 048
  6. PRESERVISION [Concomitant]
     Dosage: 1 ANZ
     Route: 031
  7. HYDROCHLOROTHIAZIDE AND LISINOPRIL [Concomitant]
     Active Substance: HYDROCHLOROTHIAZIDE\LISINOPRIL
     Dosage: DOSE PER APPLICATION AND DAILY DOSE: 200/125 MG
     Route: 048

REACTIONS (1)
  - Gastrointestinal haemorrhage [Unknown]

NARRATIVE: CASE EVENT DATE: 20120711
